FAERS Safety Report 6199143-4 (Version None)
Quarter: 2009Q2

REPORT INFORMATION
  Report Type: 
  Country: None (occurrence: None)
  Receive Date: 20090522
  Receipt Date: 20090518
  Transmission Date: 20091009
  Serious: Yes (Death)
  Sender: FDA-Public Use
  Company Number: US-ROCHE-629422

PATIENT
  Sex: Female

DRUGS (7)
  1. CAPECITABINE [Suspect]
     Dosage: ^CYCLE 1 X 14 DAYS^
     Route: 048
     Dates: start: 20090303
  2. ELAVIL [Concomitant]
     Indication: INSOMNIA
     Route: 048
     Dates: start: 20081209
  3. DILAUDID [Concomitant]
     Indication: ANALGESIC THERAPY
     Dosage: TAKEN WHEN NEEDED
     Route: 048
  4. LASIX [Concomitant]
     Route: 048
  5. ALDACTONE [Concomitant]
     Route: 048
  6. CALTRATE [Concomitant]
     Dosage: INDICATION: OTC
  7. ADVIL [Concomitant]
     Dosage: INDICATION: OTC

REACTIONS (1)
  - METASTASES TO LIVER [None]
